FAERS Safety Report 5294505-1 (Version None)
Quarter: 2007Q2

REPORT INFORMATION
  Report Type: 
  Country: None (occurrence: None)
  Receive Date: 20070406
  Receipt Date: 20070328
  Transmission Date: 20071010
  Serious: Yes (Hospitalization)
  Sender: FDA-Public Use
  Company Number: CERZ-11499

PATIENT
  Age: 66 Year
  Sex: Female
  Weight: 53.6 kg

DRUGS (5)
  1. CEREZYME [Suspect]
     Indication: GAUCHER'S DISEASE
     Dosage: 4200 UNITS Q2WKS IV
     Route: 042
     Dates: start: 20060105
  2. AZILECT [Concomitant]
  3. LOPRESSOR [Concomitant]
  4. WELLBUTRIN [Concomitant]
  5. SEROQUEL [Concomitant]

REACTIONS (3)
  - FALL [None]
  - FEMUR FRACTURE [None]
  - VITAMIN B12 DEFICIENCY [None]
